FAERS Safety Report 5268041-2 (Version None)
Quarter: 2007Q1

REPORT INFORMATION
  Report Type: 
  Country: None (occurrence: None)
  Receive Date: 20070319
  Receipt Date: 20070307
  Transmission Date: 20070707
  Serious: Yes (Death)
  Sender: FDA-Public Use
  Company Number: CS-NOVOPROD-260828

PATIENT
  Age: 38 Year
  Sex: Female
  Weight: 56 kg

DRUGS (1)
  1. LEVEMIR [Suspect]
     Indication: DIABETES MELLITUS INSULIN-DEPENDENT
     Route: 058
     Dates: start: 20070110, end: 20070101

REACTIONS (1)
  - DEATH [None]
